FAERS Safety Report 8023609-5 (Version None)
Quarter: 2012Q1

REPORT INFORMATION
  Report Type: 
  Country: None (occurrence: None)
  Receive Date: 20120104
  Receipt Date: 20120104
  Transmission Date: 20120608
  Serious: No
  Sender: FDA-Public Use
  Company Number: None

PATIENT
  Sex: Male

DRUGS (1)
  1. ENBREL 60MG AMGEN [Suspect]
     Indication: PSORIASIS
     Dosage: 50MG B/W SQ
     Route: 058
     Dates: start: 20080203

REACTIONS (2)
  - DYSKINESIA [None]
  - MUSCLE TWITCHING [None]
